FAERS Safety Report 5522153-4 (Version None)
Quarter: 2007Q4

REPORT INFORMATION
  Report Type: 
  Country: None (occurrence: None)
  Receive Date: 20071116
  Receipt Date: 20071107
  Transmission Date: 20080405
  Serious: Yes (Death, Life-Threatening, Hospitalization)
  Sender: FDA-Public Use
  Company Number: 2006-06-2337

PATIENT
  Age: 58 Year
  Sex: Male
  Weight: 82 kg

DRUGS (3)
  1. TEMOZOLOMIDE [Suspect]
     Indication: METASTATIC MALIGNANT MELANOMA
     Dosage: 300 MG;QOW;PO
     Route: 048
     Dates: start: 20060505, end: 20060622
  2. TEMOZOLOMIDE [Suspect]
  3. MORPHINE [Concomitant]

REACTIONS (6)
  - MALIGNANT NEOPLASM PROGRESSION [None]
  - METASTASES TO LIVER [None]
  - METASTASES TO LUNG [None]
  - PNEUMONIA [None]
  - PULMONARY OEDEMA [None]
  - SURGICAL PROCEDURE REPEATED [None]
